FAERS Safety Report 9052261 (Version 3)
Quarter: 2013Q1

REPORT INFORMATION
  Report Type: Spontaneous
  Country: CA (occurrence: CA)
  Receive Date: 20130206
  Receipt Date: 20130321
  Transmission Date: 20140127
  Serious: Yes (Hospitalization, Other)
  Sender: FDA-Public Use
  Company Number: PHHY2013CA010990

PATIENT
  Age: 72 None
  Sex: Female

DRUGS (7)
  1. TASIGNA [Suspect]
     Indication: CHRONIC MYELOID LEUKAEMIA
     Dosage: 400 MG, BID
     Route: 048
     Dates: start: 20091010, end: 20130308
  2. IRON SUPPLEMENTS [Concomitant]
  3. URSODIOL [Concomitant]
  4. HYDROCHLOROTHIAZIDE [Concomitant]
  5. SYNTHROID [Concomitant]
  6. DESMOPRESIN [Concomitant]
  7. FERROUS GLUCONATE [Concomitant]

REACTIONS (10)
  - Cerebrovascular accident [Unknown]
  - Speech disorder [Unknown]
  - Abasia [Unknown]
  - Hemiplegia [Unknown]
  - Ischaemic stroke [Unknown]
  - Sensory loss [Unknown]
  - Vision blurred [Unknown]
  - Coronary artery occlusion [Unknown]
  - Stomatitis [Unknown]
  - Aphagia [Unknown]
